FAERS Safety Report 11247916 (Version 1)
Quarter: 2015Q3

REPORT INFORMATION
  Report Type: Spontaneous
  Country: GB (occurrence: GB)
  Receive Date: 20150708
  Receipt Date: 20150708
  Transmission Date: 20151125
  Serious: Yes (Disabling)
  Sender: FDA-Public Use
  Company Number: GB-TEVA-575769ACC

PATIENT
  Sex: Male

DRUGS (3)
  1. CANDESARTAN [Suspect]
     Active Substance: CANDESARTAN
  2. SIMVASTATIN. [Suspect]
     Active Substance: SIMVASTATIN
  3. TAMSULOSIN [Suspect]
     Active Substance: TAMSULOSIN

REACTIONS (2)
  - Musculoskeletal pain [Unknown]
  - Pain in extremity [Unknown]
